FAERS Safety Report 10085294 (Version 2)
Quarter: 2014Q2

REPORT INFORMATION
  Report Type: Not Available
  Country: None (occurrence: AR)
  Receive Date: 20140417
  Receipt Date: 20140522
  Transmission Date: 20141212
  Serious: Yes (Life-Threatening, Hospitalization)
  Sender: FDA-Public Use
  Company Number: AR-ONYX-2014-0846

PATIENT
  Sex: Female

DRUGS (2)
  1. KYPROLIS [Suspect]
     Indication: PLASMA CELL MYELOMA
     Route: 042
  2. DEXAMETHASONE [Concomitant]
     Indication: PLASMA CELL MYELOMA

REACTIONS (1)
  - Plasma cell myeloma [Not Recovered/Not Resolved]
